FAERS Safety Report 4705237-X (Version None)
Quarter: 2005Q3

REPORT INFORMATION
  Report Type: 
  Country: None (occurrence: None)
  Receive Date: 20050701
  Receipt Date: 20000310
  Transmission Date: 20060218
  Serious: Yes (Hospitalization)
  Sender: FDA-Public Use
  Company Number: FR-ROCHE-231481

PATIENT
  Sex: Male
  Weight: 3.4 kg

DRUGS (11)
  1. INVIRASE [Suspect]
  2. EPIVIR [Suspect]
     Indication: HIV INFECTION
  3. COMBIVIR [Suspect]
     Indication: HIV INFECTION
  4. RETROVIR [Suspect]
     Indication: HIV INFECTION
  5. RETROVIR [Suspect]
     Dosage: AN INFUSION OF RETROVIR WAS GIVEN TO THE MOTHER DURING DELIVERY. STRENGTH: 200 MG/20 ML.
     Dates: start: 19990207, end: 19990207
  6. SALBUTAMOL [Concomitant]
     Dosage: TAKEN FROM 33RD WEEK OF PREGNANCY.
  7. BACTRIM [Concomitant]
     Indication: DRUG USE FOR UNKNOWN INDICATION
  8. COLPOSEPTINE [Concomitant]
     Dosage: RECEIVED ON 33RD WEEK OF PREGNANCY.
  9. ZIDOVUDINE [Concomitant]
     Indication: HIV INFECTION
  10. EPIVIR [Concomitant]
     Dosage: RECEIVED DURING FIRST 6 WEEKS OF LIFE
  11. RETROVIR [Concomitant]
     Dosage: RECEIVED DURING FIRST 6 WEEKS OF LIFE.

REACTIONS (14)
  - ANAEMIA [None]
  - APGAR SCORE LOW [None]
  - BLOOD LACTIC ACID INCREASED [None]
  - CARDIAC MURMUR [None]
  - DRUG EXPOSURE DURING PREGNANCY [None]
  - DYSPHAGIA [None]
  - FUNGAL INFECTION [None]
  - GAIT DISTURBANCE [None]
  - HYPERLIPIDAEMIA [None]
  - HYPERTONIA [None]
  - HYPOTONIA [None]
  - LIPASE INCREASED [None]
  - NEUTROPENIA [None]
  - PREMATURE LABOUR [None]
